FAERS Safety Report 5061231-3 (Version None)
Quarter: 2006Q3

REPORT INFORMATION
  Report Type: 
  Country: None (occurrence: None)
  Receive Date: 20060720
  Receipt Date: 20060707
  Transmission Date: 20061208
  Serious: Yes (Death, Other)
  Sender: FDA-Public Use
  Company Number: 2006-DE-03481GD

PATIENT
  Sex: Female

DRUGS (8)
  1. PREDNISONE TAB [Suspect]
     Indication: VASCULITIS CEREBRAL
     Dosage: 60 MG NR (NR)
  2. CYCLOPHOSPHAMIDE [Suspect]
     Indication: VASCULITIS CEREBRAL
  3. METHOTREXATE [Suspect]
     Indication: CENTRAL NERVOUS SYSTEM LYMPHOMA
     Dosage: NR (NR), IT
     Route: 037
  4. METHYLPREDNISOLONE [Suspect]
     Indication: VASCULITIS CEREBRAL
     Dosage: 1 G (NR), (NR)
  5. DOXORUBICIN HCL [Suspect]
     Indication: CENTRAL NERVOUS SYSTEM LYMPHOMA
  6. VINCRISTINE [Suspect]
     Indication: CENTRAL NERVOUS SYSTEM LYMPHOMA
  7. LEVOTHYROXINE SODIUM [Concomitant]
  8. CYCLOSPORINE [Concomitant]

REACTIONS (24)
  - ABASIA [None]
  - ALEXIA [None]
  - ANGIOPATHY [None]
  - APRAXIA [None]
  - AUTOIMMUNE DISORDER [None]
  - BRAIN SCAN ABNORMAL [None]
  - CENTRAL NERVOUS SYSTEM LYMPHOMA [None]
  - CEREBRAL ISCHAEMIA [None]
  - CONFUSIONAL STATE [None]
  - COORDINATION ABNORMAL [None]
  - DYSARTHRIA [None]
  - ENCEPHALOMALACIA [None]
  - GENERAL PHYSICAL HEALTH DETERIORATION [None]
  - GLOMERULONEPHRITIS PROLIFERATIVE [None]
  - INCONTINENCE [None]
  - INFLAMMATION [None]
  - LETHARGY [None]
  - LYMPHOMA [None]
  - MULTIPLE SCLEROSIS [None]
  - NERVOUS SYSTEM DISORDER [None]
  - NUCLEAR MAGNETIC RESONANCE IMAGING BRAIN ABNORMAL [None]
  - PERITONEAL TUBERCULOSIS [None]
  - SENSORY DISTURBANCE [None]
  - VISUAL FIELD DEFECT [None]
